FAERS Safety Report 6844548-9 (Version None)
Quarter: 2010Q3

REPORT INFORMATION
  Report Type: 
  Country: None (occurrence: None)
  Receive Date: 20100715
  Receipt Date: 20100702
  Transmission Date: 20110219
  Serious: Yes (Hospitalization)
  Sender: FDA-Public Use
  Company Number: PHHY2010NL43659

PATIENT
  Sex: Male

DRUGS (2)
  1. ZOMETA [Suspect]
     Dosage: 4 MG / 5 ML
     Route: 042
     Dates: start: 20100608, end: 20100702
  2. HORMONES [Concomitant]

REACTIONS (3)
  - COLITIS [None]
  - ELECTROLYTE IMBALANCE [None]
  - HYPOCALCAEMIA [None]
